FAERS Safety Report 24829006 (Version 1)
Quarter: 2025Q1

REPORT INFORMATION
  Report Type: Spontaneous
  Country: US (occurrence: US)
  Receive Date: 20250110
  Receipt Date: 20250110
  Transmission Date: 20250409
  Serious: Yes (Hospitalization, Other)
  Sender: ASPIRO PHARMA
  Company Number: US-ASPIRO-ASP2024US05141

PATIENT
  Age: 73 Year
  Sex: Male

DRUGS (1)
  1. PROPOFOL [Suspect]
     Active Substance: PROPOFOL
     Indication: Anaesthesia
     Route: 065

REACTIONS (1)
  - Drug-induced liver injury [Recovering/Resolving]
